FAERS Safety Report 5623506-6 (Version None)
Quarter: 2008Q1

REPORT INFORMATION
  Report Type: 
  Country: None (occurrence: None)
  Receive Date: 20080212
  Receipt Date: 20080131
  Transmission Date: 20080703
  Serious: Yes (Hospitalization)
  Sender: FDA-Public Use
  Company Number: JP-ELI_LILLY_AND_COMPANY-JP200802001263

PATIENT
  Age: 38 Year
  Sex: Female
  Weight: 45.5 kg

DRUGS (10)
  1. HUMALOG [Suspect]
     Indication: DIABETES MELLITUS
     Dosage: 10 IU, EACH MORNING
     Route: 058
  2. HUMALOG [Suspect]
     Dosage: 8 IU, OTHER
     Route: 058
  3. HUMALOG [Suspect]
     Dosage: 8 IU, EACH EVENING
     Route: 058
  4. HUMALOG [Suspect]
     Dosage: 10 IU, EACH MORNING
     Route: 058
  5. HUMALOG [Suspect]
     Dosage: 6 IU, OTHER
     Route: 058
  6. HUMALOG [Suspect]
     Dosage: 8 IU, EACH EVENING
     Route: 058
  7. HUMALOG [Suspect]
     Dosage: 3 IU, DAILY (1/D)
     Route: 058
  8. LANTUS [Concomitant]
     Indication: DIABETES MELLITUS
     Dosage: 16 IU, OTHER
     Route: 058
  9. LANTUS [Concomitant]
     Dosage: 15 IU, OTHER
     Route: 058
  10. LANTUS [Concomitant]
     Dosage: 4 IU, DAILY (1/D)
     Route: 058

REACTIONS (3)
  - DIABETES MELLITUS INADEQUATE CONTROL [None]
  - HYPOGLYCAEMIA [None]
  - LOSS OF CONSCIOUSNESS [None]
